FAERS Safety Report 5647027-X (Version None)
Quarter: 2008Q1

REPORT INFORMATION
  Report Type: 
  Country: None (occurrence: None)
  Receive Date: 20080303
  Receipt Date: 20080222
  Transmission Date: 20080703
  Serious: Yes (Death, Hospitalization)
  Sender: FDA-Public Use
  Company Number: B0510374A

PATIENT
  Sex: Male

DRUGS (3)
  1. AVANDIA [Suspect]
     Route: 048
     Dates: start: 20060531
  2. NOVOLOG MIX 70/30 [Concomitant]
     Dates: start: 20060531
  3. ESOMEPRAZOLE MAGNESIUM [Concomitant]

REACTIONS (4)
  - GASTROINTESTINAL DISORDER [None]
  - INTESTINAL OPERATION [None]
  - LIVER DISORDER [None]
  - PROCEDURAL COMPLICATION [None]
